FAERS Safety Report 9146633 (Version 2)
Quarter: 2013Q4

REPORT INFORMATION
  Report Type: Spontaneous
  Country: US (occurrence: None)
  Receive Date: 20130220
  Receipt Date: 20131125
  Transmission Date: 20140711
  Serious: Yes (Death)
  Sender: FDA-Public Use
  Company Number: UTC-028955

PATIENT
  Age: 83 Year
  Sex: Male
  Weight: 63.63 kg

DRUGS (2)
  1. TYVASO [Suspect]
     Indication: PULMONARY ARTERIAL HYPERTENSION
     Dosage: 18-54 MCGS (4 IN 1 DAY), INHALATION
     Dates: start: 20120911
  2. COUMADIN (WARFARIN SODIUM) [Concomitant]

REACTIONS (2)
  - Death [None]
  - Interstitial lung disease [None]
